FAERS Safety Report 8784306 (Version 1)
Quarter: 2012Q4

REPORT INFORMATION
  Report Type: Spontaneous
  Country: GB (occurrence: None)
  Receive Date: 20120829
  Receipt Date: 20120829
  Transmission Date: 20130627
  Serious: Yes (Disabling, Other)
  Sender: FDA-Public Use
  Company Number: CL-440-2012

PATIENT
  Age: 44 Year
  Sex: Male
  Weight: 3.2 kg

DRUGS (3)
  1. CIPROFLOXACIN HYDROCHLORIDE [Suspect]
     Indication: EPIDIDYMITIS
     Route: 048
  2. FLUOXETINE [Concomitant]
  3. LANSOPRAZOLE [Suspect]

REACTIONS (9)
  - Headache [None]
  - Muscle spasms [None]
  - Tendon pain [None]
  - Agitation [None]
  - Anger [None]
  - Depression [None]
  - Insomnia [None]
  - Malaise [None]
  - Violence-related symptom [None]
